FAERS Safety Report 5329462-2 (Version None)
Quarter: 2007Q2

REPORT INFORMATION
  Report Type: 
  Country: None (occurrence: None)
  Receive Date: 20070222
  Receipt Date: 20061030
  Transmission Date: 20071010
  Serious: Yes (Other)
  Sender: FDA-Public Use
  Company Number: 31786

PATIENT
  Sex: Female

DRUGS (1)
  1. HALOPERIDOL DECANOATE [Suspect]
     Indication: SCHIZOPHRENIA
     Dosage: 125MG/IM/EVERY 28 DAYS
     Route: 030

REACTIONS (2)
  - HYPERTHERMIA [None]
  - PYREXIA [None]
